FAERS Safety Report 23184123 (Version 1)
Quarter: 2023Q4

REPORT INFORMATION
  Report Type: Spontaneous
  Country: AU (occurrence: AU)
  Receive Date: 20231115
  Receipt Date: 20231115
  Transmission Date: 20240110
  Serious: Yes (Life-Threatening)
  Sender: FDA-Public Use
  Company Number: AU-drreddys-LIT/AUS/23/0183347

PATIENT
  Age: 60 Year
  Sex: Male

DRUGS (2)
  1. IMATINIB [Suspect]
     Active Substance: IMATINIB
     Indication: Gastrointestinal stromal tumour
     Dates: end: 202003
  2. IMATINIB [Suspect]
     Active Substance: IMATINIB
     Dosage: DOSE INCREASED
     Dates: start: 202003, end: 202004

REACTIONS (3)
  - Drug ineffective [Unknown]
  - Neoplasm progression [Recovering/Resolving]
  - Periorbital oedema [Unknown]
